FAERS Safety Report 13076664 (Version 2)
Quarter: 2017Q1

REPORT INFORMATION
  Report Type: Spontaneous
  Country: US (occurrence: US)
  Receive Date: 20161230
  Receipt Date: 20170118
  Transmission Date: 20170428
  Serious: No
  Sender: FDA-Public Use
  Company Number: US-009507513-1612USA008660

PATIENT
  Age: 63 Year
  Sex: Female

DRUGS (1)
  1. ZEPATIER [Suspect]
     Active Substance: ELBASVIR\GRAZOPREVIR
     Indication: HEPATITIS C
     Dosage: TAKE 1 TABLET BY MOUTH EVERY DAY
     Route: 048
     Dates: start: 20161129

REACTIONS (5)
  - Headache [Not Recovered/Not Resolved]
  - Anxiety [Unknown]
  - Stress [Unknown]
  - Upper limb fracture [Unknown]
  - Insomnia [Unknown]

NARRATIVE: CASE EVENT DATE: 20161214
